FAERS Safety Report 4852147-3 (Version None)
Quarter: 2005Q4

REPORT INFORMATION
  Report Type: 
  Country: None (occurrence: None)
  Receive Date: 20051213
  Receipt Date: 20051201
  Transmission Date: 20060501
  Serious: Yes (Hospitalization)
  Sender: FDA-Public Use
  Company Number: 2005UW18085

PATIENT
  Age: 65 Year
  Sex: Male

DRUGS (1)
  1. IRESSA [Suspect]

REACTIONS (6)
  - ABDOMINAL PAIN [None]
  - DYSURIA [None]
  - NAUSEA [None]
  - OEDEMA PERIPHERAL [None]
  - PYREXIA [None]
  - VOMITING [None]
